FAERS Safety Report 13144380 (Version 2)
Quarter: 2017Q1

REPORT INFORMATION
  Report Type: Spontaneous
  Country: US (occurrence: US)
  Receive Date: 20170124
  Receipt Date: 20170201
  Transmission Date: 20170428
  Serious: No
  Sender: FDA-Public Use
  Company Number: US-HORIZON-ACT-0013-2017

PATIENT
  Age: 33 Year
  Sex: Female

DRUGS (14)
  1. VALACYCLOVIR [Concomitant]
     Active Substance: VALACYCLOVIR HYDROCHLORIDE
  2. NUCALA [Concomitant]
     Active Substance: MEPOLIZUMAB
  3. MICROGESTIN [Concomitant]
     Active Substance: ETHINYL ESTRADIOL\NORETHINDRONE ACETATE
  4. SYMBICORT [Concomitant]
     Active Substance: BUDESONIDE\FORMOTEROL FUMARATE DIHYDRATE
  5. CLINDAMYCIN. [Concomitant]
     Active Substance: CLINDAMYCIN
  6. RIZATRIPTAN. [Concomitant]
     Active Substance: RIZATRIPTAN
  7. NYSTATIN. [Concomitant]
     Active Substance: NYSTATIN
  8. PREDNISONE. [Concomitant]
     Active Substance: PREDNISONE
  9. BETAMETH VAL [Concomitant]
  10. MYCOPHENOLAT [Concomitant]
     Active Substance: MYCOPHENOLATE MOFETIL
  11. MONTELUKAST [Concomitant]
     Active Substance: MONTELUKAST SODIUM
  12. ACTIMMUNE [Suspect]
     Active Substance: INTERFERON GAMMA-1B
     Indication: BLOOD DISORDER
     Dosage: 100 ?G WEEKLY
     Route: 058
     Dates: start: 20140619
  13. TRIAMCINOLON [Concomitant]
  14. CLOBETASOL [Concomitant]
     Active Substance: CLOBETASOL

REACTIONS (2)
  - Influenza like illness [Unknown]
  - Off label use [Unknown]

NARRATIVE: CASE EVENT DATE: 201612
